APPROVED DRUG PRODUCT: MESALAMINE
Active Ingredient: MESALAMINE
Strength: 4GM/60ML
Dosage Form/Route: ENEMA;RECTAL
Application: A076751 | Product #001 | TE Code: AB
Applicant: PADAGIS ISRAEL PHARMACEUTICALS LTD
Approved: Sep 17, 2004 | RLD: No | RS: No | Type: RX